FAERS Safety Report 16306550 (Version 1)
Quarter: 2019Q2

REPORT INFORMATION
  Report Type: Spontaneous
  Country: DE (occurrence: DE)
  Receive Date: 20190513
  Receipt Date: 20190513
  Transmission Date: 20190711
  Serious: Yes (Hospitalization)
  Sender: FDA-Public Use
  Company Number: DE-OTSUKA-2019_017437

PATIENT
  Age: 41 Year
  Sex: Female
  Weight: 116.3 kg

DRUGS (6)
  1. ARIPIPRAZOLE. [Suspect]
     Active Substance: ARIPIPRAZOLE
     Dosage: 1-0-0
     Route: 065
  2. OCRELIZUMAB. [Suspect]
     Active Substance: OCRELIZUMAB
     Indication: RELAPSING-REMITTING MULTIPLE SCLEROSIS
     Dosage: 300 MG, UNK
     Route: 042
     Dates: start: 20180712
  3. OCRELIZUMAB. [Suspect]
     Active Substance: OCRELIZUMAB
     Dosage: SECOND INFUSION RECEIVED
     Route: 042
     Dates: start: 20180724
  4. ARIPIPRAZOLE. [Suspect]
     Active Substance: ARIPIPRAZOLE
     Indication: PRODUCT USED FOR UNKNOWN INDICATION
     Dosage: 1-0-0
     Route: 065
  5. OCRELIZUMAB. [Suspect]
     Active Substance: OCRELIZUMAB
     Dosage: 600 MG, UNK
     Route: 042
     Dates: start: 20190205
  6. ARIPIPRAZOLE. [Suspect]
     Active Substance: ARIPIPRAZOLE
     Dosage: 1-0-0
     Route: 065

REACTIONS (20)
  - Heart rate increased [Recovered/Resolved]
  - Muscle tightness [Recovered/Resolved]
  - Drug level increased [Recovered/Resolved]
  - Body temperature increased [Recovered/Resolved]
  - Weight increased [Not Recovered/Not Resolved]
  - Hypoaesthesia [Recovered/Resolved]
  - Pain in extremity [Recovered/Resolved]
  - Mood swings [Recovering/Resolving]
  - Vitamin D decreased [Unknown]
  - Influenza [Recovered/Resolved]
  - Fatigue [Recovered/Resolved]
  - Product use issue [Unknown]
  - Pain [Recovering/Resolving]
  - Erythema [Recovered/Resolved]
  - Urine analysis abnormal [Recovering/Resolving]
  - Autoinflammatory disease [Recovered/Resolved]
  - Paraesthesia [Recovered/Resolved]
  - Vertigo positional [Recovered/Resolved]
  - Joint dislocation [Recovering/Resolving]
  - Nasopharyngitis [Recovered/Resolved]

NARRATIVE: CASE EVENT DATE: 20180712
